FAERS Safety Report 14262817 (Version 13)
Quarter: 2018Q4

REPORT INFORMATION
  Report Type: Spontaneous
  Country: PT (occurrence: PT)
  Receive Date: 20171208
  Receipt Date: 20180906
  Transmission Date: 20190204
  Serious: Yes (Disabling, Other)
  Sender: FDA-Public Use
  Company Number: PT-JNJFOC-20171207962

PATIENT
  Age: 78 Year
  Sex: Female
  Weight: 68 kg

DRUGS (18)
  1. TRAMADOL HYDROCHLORIDE. [Suspect]
     Active Substance: TRAMADOL HYDROCHLORIDE
     Indication: OSTEOARTHRITIS
     Route: 042
     Dates: start: 20170810, end: 20170817
  2. TRAMADOL HYDROCHLORIDE. [Suspect]
     Active Substance: TRAMADOL HYDROCHLORIDE
     Indication: OSTEOARTHRITIS
     Route: 048
     Dates: start: 20170824, end: 20171003
  3. OMEPRAZOLE. [Concomitant]
     Active Substance: OMEPRAZOLE
     Indication: PROPHYLAXIS AGAINST GASTROINTESTINAL ULCER
     Route: 048
     Dates: start: 2008
  4. PARACETAMOL [Suspect]
     Active Substance: ACETAMINOPHEN
     Indication: OSTEOARTHRITIS
     Route: 048
     Dates: start: 20170817, end: 20170823
  5. TRAMADOL HYDROCHLORIDE. [Suspect]
     Active Substance: TRAMADOL HYDROCHLORIDE
     Indication: OSTEOARTHRITIS
     Route: 048
     Dates: start: 20170817, end: 20170824
  6. TRIDURAL [Suspect]
     Active Substance: TRAMADOL HYDROCHLORIDE
     Indication: OSTEOARTHRITIS
     Route: 048
     Dates: start: 20170810
  7. NOLOTIL (METAMIZOLE MAGNESIUM) [Suspect]
     Active Substance: METAMIZOLE MAGNESIUM
     Indication: OSTEOARTHRITIS
     Route: 042
     Dates: start: 20170810, end: 20170816
  8. PARACETAMOL [Suspect]
     Active Substance: ACETAMINOPHEN
     Indication: OSTEOARTHRITIS
     Route: 042
     Dates: start: 20170810, end: 20170817
  9. CARTIA [Concomitant]
     Indication: PROPHYLAXIS
     Route: 048
     Dates: start: 1992
  10. HYTACAND [Concomitant]
     Active Substance: CANDESARTAN CILEXETIL\HYDROCHLOROTHIAZIDE
     Indication: HYPERTENSION
     Route: 048
     Dates: start: 1991
  11. PARACETAMOL SANDOZ [Suspect]
     Active Substance: ACETAMINOPHEN
     Indication: OSTEOARTHRITIS
     Route: 048
     Dates: start: 20170824, end: 20170920
  12. DIAMICRON LM [Concomitant]
     Active Substance: GLICLAZIDE
     Indication: GLUCOSE TOLERANCE IMPAIRED
     Route: 048
  13. DIAMICRON LM [Concomitant]
     Active Substance: GLICLAZIDE
     Indication: GLUCOSE TOLERANCE IMPAIRED
     Route: 048
     Dates: start: 2015
  14. TRIDURAL [Suspect]
     Active Substance: TRAMADOL HYDROCHLORIDE
     Indication: OSTEOARTHRITIS
     Route: 048
     Dates: start: 20170824, end: 20171003
  15. CARTIA [Concomitant]
     Indication: PROPHYLAXIS
     Route: 048
     Dates: start: 1992
  16. TENORMIN [Concomitant]
     Active Substance: ATENOLOL
     Indication: HYPERTENSION
     Route: 048
     Dates: start: 1991
  17. AMLODIPINE [Concomitant]
     Active Substance: AMLODIPINE BESYLATE
     Indication: HYPERTENSION
     Route: 048
     Dates: start: 2012
  18. FOSAVANCE [Concomitant]
     Active Substance: ALENDRONATE SODIUM\CHOLECALCIFEROL
     Indication: OSTEOPOROSIS PROPHYLAXIS
     Route: 048

REACTIONS (12)
  - Abdominal distension [Recovered/Resolved]
  - Nausea [Recovered/Resolved]
  - Flatulence [Recovered/Resolved]
  - Hallucination, visual [Recovered/Resolved]
  - Diarrhoea [Recovered/Resolved]
  - Cachexia [Recovered/Resolved]
  - Constipation [Recovered/Resolved]
  - Tremor [Recovered/Resolved]
  - Decreased appetite [Recovered/Resolved]
  - Vomiting [Recovered/Resolved]
  - Heart rate increased [Recovered/Resolved]
  - Micturition frequency decreased [Recovered/Resolved]

NARRATIVE: CASE EVENT DATE: 201708
